FAERS Safety Report 4269818-2 (Version None)
Quarter: 2004Q1

REPORT INFORMATION
  Report Type: 
  Country: None (occurrence: None)
  Receive Date: 20040112
  Receipt Date: 20040106
  Transmission Date: 20041129
  Serious: Yes (Hospitalization)
  Sender: FDA-Public Use
  Company Number: 18754

PATIENT
  Age: 67 Year
  Sex: Male
  Weight: 85.2762 kg

DRUGS (5)
  1. NIASPAN [Suspect]
     Indication: BLOOD TRIGLYCERIDES INCREASED
     Dosage: 500 MG QHS PO
     Route: 048
     Dates: start: 20030812
  2. QUINAGLUTE [Concomitant]
  3. LANOXIN [Concomitant]
  4. COUMADIN [Concomitant]
  5. GLUCOPHAGE [Concomitant]

REACTIONS (2)
  - ATRIAL FIBRILLATION [None]
  - FLUSHING [None]
